FAERS Safety Report 9711092 (Version 1)
Quarter: 2013Q4

REPORT INFORMATION
  Report Type: Spontaneous
  Country: US (occurrence: US)
  Receive Date: 20131126
  Receipt Date: 20131126
  Transmission Date: 20140711
  Serious: No
  Sender: FDA-Public Use
  Company Number: US-BRISTOL-MYERS SQUIBB COMPANY-19130822

PATIENT
  Age: 48 Year
  Sex: Female
  Weight: 126.98 kg

DRUGS (1)
  1. BYETTA [Suspect]
     Dates: start: 2005, end: 2005

REACTIONS (2)
  - Nausea [Recovered/Resolved]
  - Vomiting [Recovered/Resolved]
